FAERS Safety Report 6129127-3 (Version None)
Quarter: 2009Q1

REPORT INFORMATION
  Report Type: 
  Country: None (occurrence: None)
  Receive Date: 20090320
  Receipt Date: 20090317
  Transmission Date: 20090719
  Serious: Yes (Life-Threatening)
  Sender: FDA-Public Use
  Company Number: GXKR2009DE03307

PATIENT
  Age: 78 Year
  Sex: Female
  Weight: 80 kg

DRUGS (9)
  1. DOXAZOSIN MESYLATE [Suspect]
     Indication: HYPERTENSION
     Dosage: 4 MG, QD, ORAL
     Route: 048
     Dates: start: 20050101, end: 20080818
  2. SPIRONOLACTONE [Suspect]
     Indication: HYPERTENSION
     Dosage: 50 MG, QD, ORAL
     Route: 048
     Dates: start: 20080730, end: 20080818
  3. CO-DIOVAN (HYDROCHLOROTHIAZIDE, VALSARTAN) 25, 160MG [Suspect]
     Indication: HYPERTENSION
     Dosage: 1 DF, QD, ORAL
     Route: 048
     Dates: start: 20020101, end: 20080818
  4. TORSEMIDE [Suspect]
     Indication: HYPERTENSION
     Dosage: 5 MG, QD, ORAL
     Route: 048
     Dates: start: 20020101
  5. AMLODIPINE [Concomitant]
  6. DIGITOXIN INJ [Concomitant]
  7. INEGY (EZETIMIBE, SIMVASTATIN) [Concomitant]
  8. METOPROLOL TARTRATE [Concomitant]
  9. PANTOPRAZOLE SODIUM [Concomitant]

REACTIONS (1)
  - RENAL FAILURE ACUTE [None]
